FAERS Safety Report 4821596-1 (Version None)
Quarter: 2005Q4

REPORT INFORMATION
  Report Type: 
  Country: None (occurrence: None)
  Receive Date: 20051103
  Receipt Date: 20051103
  Transmission Date: 20060501
  Serious: No
  Sender: FDA-Public Use
  Company Number: None

PATIENT
  Age: 35 Year
  Sex: Female

DRUGS (3)
  1. LAMICTAL [Suspect]
     Indication: ANXIETY
     Dosage: 100 MG PO QD
     Route: 048
     Dates: start: 20050927, end: 20051030
  2. LAMICTAL [Suspect]
     Indication: BIPOLAR DISORDER
     Dosage: 100 MG PO QD
     Route: 048
     Dates: start: 20050927, end: 20051030
  3. LAMICTAL [Suspect]
     Indication: MAJOR DEPRESSION
     Dosage: 100 MG PO QD
     Route: 048
     Dates: start: 20050927, end: 20051030

REACTIONS (3)
  - DRUG ERUPTION [None]
  - HERPES SIMPLEX [None]
  - RASH [None]
